FAERS Safety Report 7306006-7 (Version None)
Quarter: 2011Q1

REPORT INFORMATION
  Report Type: 
  Country: None (occurrence: None)
  Receive Date: 20110222
  Receipt Date: 20110215
  Transmission Date: 20110831
  Serious: Yes (Other)
  Sender: FDA-Public Use
  Company Number: US-ABBOTT-11P-163-0705694-00

PATIENT
  Sex: Male

DRUGS (3)
  1. LOVAZA [Concomitant]
     Indication: PRODUCT USED FOR UNKNOWN INDICATION
  2. SIMCOR [Suspect]
     Indication: PRODUCT USED FOR UNKNOWN INDICATION
     Dosage: 500/20 MILLIGRAMS
     Dates: start: 20100901, end: 20101101
  3. SIMCOR [Suspect]
     Dosage: 1000/40 MILLIGRAMS
     Dates: start: 20101101

REACTIONS (2)
  - CORONARY ARTERY OCCLUSION [None]
  - FLUSHING [None]
